FAERS Safety Report 7390427-0 (Version None)
Quarter: 2011Q2

REPORT INFORMATION
  Report Type: 
  Country: None (occurrence: None)
  Receive Date: 20110401
  Receipt Date: 20110323
  Transmission Date: 20111010
  Serious: Yes (Hospitalization)
  Sender: FDA-Public Use
  Company Number: US-B.I. PHARMACEUTICALS,INC./RIDGEFIELD-2011-BP-08864BP

PATIENT
  Sex: Female
  Weight: 74.5 kg

DRUGS (6)
  1. DABIGATRAN [Suspect]
     Indication: CEREBROVASCULAR ACCIDENT PROPHYLAXIS
     Route: 048
     Dates: start: 20090112
  2. DABIGATRAN [Suspect]
     Indication: ATRIAL FIBRILLATION
  3. THYROID ARMOUR [Concomitant]
     Indication: THYROID DISORDER
     Route: 048
  4. ESTRATEST [Concomitant]
     Indication: HORMONE REPLACEMENT THERAPY
     Route: 048
  5. DIGOXIN [Concomitant]
     Indication: CARDIAC DISORDER
     Route: 048
     Dates: start: 19970101
  6. AZITHROMYCIN [Concomitant]
     Indication: LYME DISEASE
     Route: 048
     Dates: start: 20101203

REACTIONS (1)
  - CEREBROVASCULAR ACCIDENT [None]
